FAERS Safety Report 18576752 (Version 2)
Quarter: 2020Q4

REPORT INFORMATION
  Report Type: Spontaneous
  Country: LT (occurrence: LT)
  Receive Date: 20201203
  Receipt Date: 20201216
  Transmission Date: 20210114
  Serious: Yes (Life-Threatening, Hospitalization)
  Sender: FDA-Public Use
  Company Number: NVSC2020LT320475

PATIENT
  Age: 45 Year
  Sex: Male
  Weight: 100 kg

DRUGS (3)
  1. AMITRIPTYLINE [Suspect]
     Active Substance: AMITRIPTYLINE
     Indication: SUICIDAL IDEATION
     Dosage: 10 DF, QD
     Route: 065
     Dates: start: 20201113, end: 20201113
  2. PARACETAMOL [Suspect]
     Active Substance: ACETAMINOPHEN
     Indication: SUICIDAL IDEATION
     Dosage: 500 MG, QD
     Route: 065
     Dates: start: 20201113, end: 20201113
  3. BROMAZEPAM [Suspect]
     Active Substance: BROMAZEPAM
     Indication: SUICIDAL IDEATION
     Dosage: 10 DF, QD
     Route: 048
     Dates: start: 20201113, end: 20201113

REACTIONS (4)
  - Intentional product use issue [Unknown]
  - Suicidal ideation [Recovering/Resolving]
  - Off label use [Unknown]
  - Intentional overdose [Unknown]

NARRATIVE: CASE EVENT DATE: 20201113
